FAERS Safety Report 8779067 (Version 2)
Quarter: 2012Q4

REPORT INFORMATION
  Report Type: 
  Country: US (occurrence: US)
  Receive Date: 20120912
  Receipt Date: 20120926
  Transmission Date: 20130627
  Serious: Yes (Other)
  Sender: FDA-Public Use
  Company Number: US-PFIZER INC-2012220233

PATIENT
  Age: 54 Year
  Sex: Male
  Weight: 77.1 kg

DRUGS (3)
  1. VIAGRA [Suspect]
     Indication: ERECTILE DYSFUNCTION
     Dosage: 100 mg tablets split, UNK
     Route: 048
     Dates: start: 2001, end: 2012
  2. HYDROCODONE [Concomitant]
     Indication: INTERVERTEBRAL DISC DEGENERATION
     Dosage: 1 to 3 tablets, as needed
  3. EFFEXOR-XR [Concomitant]
     Indication: DEPRESSION
     Dosage: 150 mg, daily

REACTIONS (1)
  - Neoplasm malignant [Unknown]
